FAERS Safety Report 21705841 (Version 1)
Quarter: 2022Q4

REPORT INFORMATION
  Report Type: Spontaneous
  Country: US (occurrence: None)
  Receive Date: 20221208
  Receipt Date: 20221208
  Transmission Date: 20230113
  Serious: Yes (Hospitalization)
  Sender: FDA-Public Use
  Company Number: None

PATIENT
  Sex: Female

DRUGS (8)
  1. REBIF [Suspect]
     Active Substance: INTERFERON BETA-1A
     Indication: Multiple sclerosis
     Dosage: OTHER QUANTITY : 22MCG/0.5ML;?
     Route: 058
     Dates: start: 20220128
  2. GABAPENTIN [Concomitant]
     Active Substance: GABAPENTIN
  3. LEVOXYL TAB [Concomitant]
  4. LIOTHYRONINE TAB [Concomitant]
  5. MODAFINIL TAB [Concomitant]
  6. VITAMIN B12 TAB [Concomitant]
  7. VITAMIN D CAP [Concomitant]
  8. VITAMIN D3 CAP [Concomitant]

REACTIONS (2)
  - COVID-19 [None]
  - Therapy interrupted [None]
